FAERS Safety Report 6260728-8 (Version None)
Quarter: 2009Q3

REPORT INFORMATION
  Report Type: 
  Country: None (occurrence: None)
  Receive Date: 20090708
  Receipt Date: 20090630
  Transmission Date: 20100115
  Serious: Yes (Other)
  Sender: FDA-Public Use
  Company Number: US-ABBOTT-09P-163-0582655-00

PATIENT
  Sex: Female
  Weight: 45.4 kg

DRUGS (7)
  1. HUMIRA [Suspect]
     Indication: ANKYLOSING SPONDYLITIS
     Dates: start: 20070603
  2. HUMIRA [Suspect]
     Indication: CROHN'S DISEASE
     Dates: start: 20070101, end: 20070101
  3. VERAPAMIL [Concomitant]
     Indication: MIGRAINE
  4. TOPAMAX [Concomitant]
     Indication: MIGRAINE
  5. VAGIFEM [Concomitant]
     Indication: HORMONE REPLACEMENT THERAPY
  6. COUMADIN [Concomitant]
     Indication: ABNORMAL CLOTTING FACTOR
     Dosage: 2MG X5 TIMES A WEEK
  7. METHADONE [Concomitant]
     Indication: PAIN
     Dates: start: 20090401

REACTIONS (7)
  - CROHN'S DISEASE [None]
  - DRUG DOSE OMISSION [None]
  - INJECTION SITE HAEMORRHAGE [None]
  - INJECTION SITE LACERATION [None]
  - INJECTION SITE PAIN [None]
  - ROAD TRAFFIC ACCIDENT [None]
  - UPPER LIMB FRACTURE [None]
